FAERS Safety Report 7468067-4 (Version None)
Quarter: 2011Q2

REPORT INFORMATION
  Report Type: 
  Country: None (occurrence: None)
  Receive Date: 20110509
  Receipt Date: 20110315
  Transmission Date: 20111010
  Serious: Yes (Other)
  Sender: FDA-Public Use
  Company Number: US-ALEXION-A201100200

PATIENT
  Sex: Female

DRUGS (10)
  1. SOTALOL HCL [Concomitant]
     Indication: ARRHYTHMIA
     Dosage: UNK
     Route: 048
  2. ASPIRIN [Concomitant]
     Indication: ROUTINE HEALTH MAINTENANCE
     Dosage: 81 MG, QD
     Route: 048
  3. SOLIRIS [Suspect]
     Indication: PAROXYSMAL NOCTURNAL HAEMOGLOBINURIA
     Dosage: 600 MG, QWX4
     Route: 042
     Dates: start: 20090101, end: 20090101
  4. ALLOPURINOL [Concomitant]
     Indication: GOUT
     Dosage: UNK
     Route: 048
  5. SOLIRIS [Suspect]
     Dosage: 900 MG, Q2W
     Route: 042
     Dates: start: 20090101
  6. FOLIC ACID [Concomitant]
     Indication: ANAEMIA
     Dosage: UNK
     Route: 048
  7. VITAMIN C [Concomitant]
     Indication: ROUTINE HEALTH MAINTENANCE
     Dosage: UNK
     Route: 048
  8. MELOXICAM [Concomitant]
     Indication: ARTHRITIS
     Dosage: UNK
     Route: 048
  9. CALCIUM [Concomitant]
     Indication: ROUTINE HEALTH MAINTENANCE
     Dosage: UNK
     Route: 048
  10. CALCIUM [Concomitant]
     Indication: BONE DISORDER

REACTIONS (6)
  - EAR INFECTION BACTERIAL [None]
  - HAEMOGLOBINURIA [None]
  - CANDIDIASIS [None]
  - VERTIGO [None]
  - DEAFNESS [None]
  - BLOOD COUNT ABNORMAL [None]
